FAERS Safety Report 8308515-0 (Version None)
Quarter: 2012Q2

REPORT INFORMATION
  Report Type: 
  Country: None (occurrence: None)
  Receive Date: 20120420
  Receipt Date: 20120410
  Transmission Date: 20120825
  Serious: Yes (Other)
  Sender: FDA-Public Use
  Company Number: DSM-2012-00354

PATIENT
  Age: 56 Year
  Sex: Female

DRUGS (1)
  1. OLMESARTAN MEDOXOMIL/HYDROCHLOROTHIAZIDE [Suspect]
     Indication: PRODUCT USED FOR UNKNOWN INDICATION
     Dosage: 20/5 MG, ORAL
     Route: 048
     Dates: start: 20120209, end: 20120313

REACTIONS (1)
  - ECCHYMOSIS [None]
